FAERS Safety Report 6882790-1 (Version None)
Quarter: 2010Q3

REPORT INFORMATION
  Report Type: 
  Country: None (occurrence: None)
  Receive Date: 20100729
  Receipt Date: 20100720
  Transmission Date: 20110219
  Serious: Yes (Other)
  Sender: FDA-Public Use
  Company Number: GR-ROCHE-716498

PATIENT
  Age: 77 Year
  Sex: Male

DRUGS (4)
  1. BONIVA [Suspect]
     Indication: OSTEOPOROSIS
     Dosage: START DATE 2 TO 2.5 YEARS
     Route: 048
  2. LEVOTHYROXINE SODIUM [Suspect]
     Dosage: DRUG NAME: T4
     Route: 048
  3. CALCIUM SUPPLEMENT [Concomitant]
     Indication: OSTEOPOROSIS
     Dosage: DRUG NAME: CALCIUM SUPPLEMENT NOS
     Route: 048
  4. AMLODIPINE [Concomitant]
     Indication: HYPERTENSION
     Dosage: DRUG NAME: EVANGIO
     Route: 048

REACTIONS (3)
  - ARTHRITIS [None]
  - FALL [None]
  - MUSCLE SPASMS [None]
